FAERS Safety Report 5050971-8 (Version None)
Quarter: 2006Q3

REPORT INFORMATION
  Report Type: 
  Country: None (occurrence: None)
  Receive Date: 20060710
  Receipt Date: 20060627
  Transmission Date: 20061208
  Serious: Yes (Other)
  Sender: FDA-Public Use
  Company Number: 2006082884

PATIENT
  Sex: Female
  Weight: 68.0396 kg

DRUGS (7)
  1. LIPITOR [Suspect]
     Indication: BLOOD CHOLESTEROL INCREASED
     Dosage: 5 MG (5 MG, 1 IN 1 D),
     Dates: end: 20060626
  2. LAMICTAL [Concomitant]
  3. AMBIEN [Concomitant]
  4. CALCIUM (CALCIUM) [Concomitant]
  5. MULTIVITAMIN [Concomitant]
  6. SYNTHROID [Concomitant]
  7. NADOLOL [Concomitant]

REACTIONS (11)
  - ASTHENIA [None]
  - BLOOD CREATININE INCREASED [None]
  - DRUG INEFFECTIVE [None]
  - DYSPHAGIA [None]
  - FATIGUE [None]
  - GAIT DISTURBANCE [None]
  - HEPATIC ENZYME INCREASED [None]
  - MYALGIA [None]
  - PAIN IN EXTREMITY [None]
  - RENAL DISORDER [None]
  - WRONG TECHNIQUE IN DRUG USAGE PROCESS [None]
